FAERS Safety Report 5400771-1 (Version None)
Quarter: 2007Q3

REPORT INFORMATION
  Report Type: 
  Country: None (occurrence: None)
  Receive Date: 20070730
  Receipt Date: 20070719
  Transmission Date: 20080115
  Serious: Yes (Other)
  Sender: FDA-Public Use
  Company Number: US-PFIZER INC-2007060824

PATIENT
  Sex: Female
  Weight: 60.909 kg

DRUGS (5)
  1. CHANTIX [Suspect]
     Indication: SMOKING CESSATION THERAPY
  2. ALL OTHER THERAPEUTIC PRODUCTS [Concomitant]
     Indication: THYROID DISORDER
  3. ANTIHYPERTENSIVES [Concomitant]
     Indication: HYPERTENSION
  4. ALL OTHER THERAPEUTIC PRODUCTS [Concomitant]
     Indication: AGITATION
  5. OTHER HYPNOTICS AND SEDATIVES [Concomitant]
     Indication: SLEEP DISORDER

REACTIONS (2)
  - DRUG INEFFECTIVE [None]
  - SURGERY [None]
